FAERS Safety Report 8926752 (Version 3)
Quarter: 2012Q4

REPORT INFORMATION
  Report Type: 
  Country: US (occurrence: US)
  Receive Date: 20121127
  Receipt Date: 20121219
  Transmission Date: 20130627
  Serious: Yes (Other)
  Sender: FDA-Public Use
  Company Number: US-ASTRAZENECA-2011SE24933

PATIENT
  Age: 59 Year
  Sex: Female
  Weight: 99.8 kg

DRUGS (37)
  1. SEROQUEL [Suspect]
     Indication: SCHIZOPHRENIA, PARANOID TYPE
     Route: 048
  2. SEROQUEL [Suspect]
     Indication: BIPOLAR DISORDER
     Route: 048
  3. SEROQUEL [Suspect]
     Indication: SCHIZOPHRENIA
     Route: 048
  4. SEROQUEL [Suspect]
     Indication: SCHIZOPHRENIA, PARANOID TYPE
     Route: 048
     Dates: start: 2002
  5. SEROQUEL [Suspect]
     Indication: BIPOLAR DISORDER
     Route: 048
     Dates: start: 2002
  6. SEROQUEL [Suspect]
     Indication: SCHIZOPHRENIA
     Route: 048
     Dates: start: 2002
  7. NEXIUM [Suspect]
     Indication: GASTROOESOPHAGEAL REFLUX DISEASE
     Route: 048
  8. CLONAPIN [Concomitant]
     Indication: ANXIETY
  9. CLONAPIN [Concomitant]
     Indication: ANXIETY
     Route: 048
  10. CLONAPIN [Concomitant]
     Indication: ANXIETY
     Dates: start: 2006
  11. TIZANIDINE [Concomitant]
     Indication: SCOLIOSIS
  12. TIZANIDINE [Concomitant]
     Indication: MUSCLE SPASMS
  13. PREDNIZONE [Concomitant]
     Indication: ASTHMA
     Dosage: VARIES
  14. FURICET [Concomitant]
     Indication: PAIN
     Dosage: ONE TABLET TID
     Route: 048
  15. GENUVIA [Concomitant]
  16. GENUVIA [Concomitant]
     Dates: start: 2008
  17. SINGULAIR [Concomitant]
     Indication: ASTHMA
     Dosage: DAILY
  18. SINGULAIR [Concomitant]
     Indication: HYPERSENSITIVITY
     Dosage: DAILY
  19. SINGULAIR [Concomitant]
     Indication: ASTHMA
     Dosage: DAILY
  20. SINGULAIR [Concomitant]
     Indication: HYPERSENSITIVITY
     Dosage: DAILY
  21. HYDROXAZINE [Concomitant]
     Indication: HYPERSENSITIVITY
  22. BUMAX [Concomitant]
     Indication: FLUID RETENTION
  23. BUMAX [Concomitant]
     Indication: FLUID RETENTION
     Route: 048
  24. CAPATIN [Concomitant]
     Indication: RENAL DISORDER
  25. ATAVAN [Concomitant]
     Indication: PANIC ATTACK
  26. ATAVAN [Concomitant]
     Indication: PANIC ATTACK
     Route: 048
  27. ALBUTEROL [Concomitant]
  28. ADVAIR [Concomitant]
     Indication: ASTHMA
     Dosage: BID
     Route: 055
  29. EPIPEN [Concomitant]
  30. OXYGEN [Concomitant]
     Indication: DYSPNOEA
     Dosage: 2 L/MIN DAILY
  31. PROZAC [Concomitant]
     Indication: DEPRESSION
     Route: 048
  32. PROZAC [Concomitant]
     Indication: DEPRESSION
     Dates: start: 2002
  33. CATAPRIL [Concomitant]
     Indication: BLOOD PRESSURE
     Route: 048
  34. IPRATROPIUM [Concomitant]
     Indication: ASTHMA
     Dosage: BID
     Route: 055
  35. NASONEX [Concomitant]
     Indication: MULTIPLE ALLERGIES
     Dosage: BID
     Route: 045
  36. NEBULIZER PROVENTIL [Concomitant]
  37. INHALERS [Concomitant]
     Dates: start: 2008

REACTIONS (17)
  - Foot fracture [Unknown]
  - Foot fracture [Unknown]
  - Fall [Unknown]
  - Bipolar disorder [Unknown]
  - Mobility decreased [Unknown]
  - Diabetes mellitus [Not Recovered/Not Resolved]
  - Fibromyalgia [Unknown]
  - Fibrosis [Unknown]
  - Eyelid function disorder [Unknown]
  - Mental disorder [Unknown]
  - Scoliosis [Unknown]
  - Vitamin D deficiency [Unknown]
  - Polyarthritis [Unknown]
  - Hallucination, auditory [Not Recovered/Not Resolved]
  - Blood cholesterol increased [Unknown]
  - Drug ineffective [Unknown]
  - Drug dose omission [Not Recovered/Not Resolved]
